FAERS Safety Report 16410033 (Version 1)
Quarter: 2019Q2

REPORT INFORMATION
  Report Type: Spontaneous
  Country: US (occurrence: US)
  Receive Date: 20190610
  Receipt Date: 20190610
  Transmission Date: 20190711
  Serious: No
  Sender: FDA-Public Use
  Company Number: US-GLAXOSMITHKLINE-US2019AMR099871

PATIENT
  Sex: Female
  Weight: 53 kg

DRUGS (1)
  1. BUPROPION SR PROLONGED-RELEASE TABLET [Suspect]
     Active Substance: BUPROPION
     Indication: DEPRESSION
     Dosage: 100 MG, QD
     Route: 048
     Dates: start: 201809

REACTIONS (3)
  - Insomnia [Unknown]
  - Intentional underdose [Unknown]
  - Product use in unapproved indication [Unknown]
